FAERS Safety Report 15353519 (Version 1)
Quarter: 2018Q3

REPORT INFORMATION
  Report Type: Report from Study
  Country: US (occurrence: US)
  Receive Date: 20180905
  Receipt Date: 20180905
  Transmission Date: 20181010
  Serious: No
  Sender: FDA-Public Use
  Company Number: PHEH2018US036658

PATIENT

DRUGS (1)
  1. SANDOSTATINE [Suspect]
     Active Substance: OCTREOTIDE ACETATE
     Indication: CARCINOID SYNDROME
     Dosage: 30 MG, EVERY 21 DAYS
     Route: 030

REACTIONS (2)
  - Abdominal pain [Unknown]
  - Anxiety [Unknown]
